FAERS Safety Report 7898126-3 (Version None)
Quarter: 2011Q4

REPORT INFORMATION
  Report Type: 
  Country: None (occurrence: None)
  Receive Date: 20111107
  Receipt Date: 20111020
  Transmission Date: 20120403
  Serious: No
  Sender: FDA-Public Use
  Company Number: US-ROXANE LABORATORIES, INC.-2011-RO-01528RO

PATIENT
  Age: 29 Year
  Sex: Male

DRUGS (8)
  1. LITHIUM CARBONATE [Suspect]
     Indication: ATTENTION DEFICIT/HYPERACTIVITY DISORDER
  2. CALCIUM [Concomitant]
  3. FOLIC ACID [Concomitant]
  4. LITHIUM CARBONATE [Suspect]
     Indication: DEPRESSION
  5. VITAMIN B-12 [Concomitant]
  6. MULTI-VITAMIN [Concomitant]
  7. LITHIUM CARBONATE [Suspect]
     Indication: INSOMNIA
  8. MAGNESIUM [Concomitant]

REACTIONS (6)
  - PALPITATIONS [None]
  - DECREASED APPETITE [None]
  - DYSARTHRIA [None]
  - ANXIETY [None]
  - THROAT IRRITATION [None]
  - DECREASED INTEREST [None]
